FAERS Safety Report 10249820 (Version 1)
Quarter: 2014Q2

REPORT INFORMATION
  Report Type: Spontaneous
  Country: US (occurrence: None)
  Receive Date: 20140618
  Receipt Date: 20140618
  Transmission Date: 20141212
  Serious: No
  Sender: FDA-Public Use
  Company Number: None

PATIENT
  Age: 61 Year
  Sex: Male
  Weight: 81.65 kg

DRUGS (1)
  1. TRAMADOL HCI 50MG NDC: 35356-0659-60 LOT38250 [Suspect]
     Indication: PAIN
     Route: 048
     Dates: start: 20140513, end: 20140602

REACTIONS (2)
  - Insomnia [None]
  - Head discomfort [None]
